FAERS Safety Report 18507751 (Version 5)
Quarter: 2020Q4

REPORT INFORMATION
  Report Type: Spontaneous
  Country: US (occurrence: US)
  Receive Date: 20201116
  Receipt Date: 20201228
  Transmission Date: 20210114
  Serious: No
  Sender: FDA-Public Use
  Company Number: US-PFIZER INC-2020447419

PATIENT
  Age: 55 Year
  Sex: Male

DRUGS (3)
  1. BRAFTOVI [Suspect]
     Active Substance: ENCORAFENIB
     Dosage: 225 MG, DAILY (BRAFTOVI CAPSULE 75MG) HE IS CURRENTLY TAKING (3 CAPSULES) DAILY)
  2. MEKTOVI [Suspect]
     Active Substance: BINIMETINIB
     Indication: MALIGNANT MELANOMA
     Dosage: 45 MG, 2X/DAY (45MG TWICE DAILY, MORNING AND EVENING WITH FOOD)
     Dates: start: 20201012
  3. BRAFTOVI [Suspect]
     Active Substance: ENCORAFENIB
     Indication: MALIGNANT MELANOMA
     Dosage: 450 MG, 1X/DAY (450MG ONCE DAILY; IN THE EVENING WITH FOOD)
     Dates: start: 20201012

REACTIONS (4)
  - Intentional product use issue [Unknown]
  - Pyrexia [Recovered/Resolved]
  - Fatigue [Unknown]
  - Illness [Unknown]
